FAERS Safety Report 6249293-9 (Version None)
Quarter: 2009Q2

REPORT INFORMATION
  Report Type: 
  Country: None (occurrence: None)
  Receive Date: 20090629
  Receipt Date: 20090413
  Transmission Date: 20091009
  Serious: No
  Sender: FDA-Public Use
  Company Number: US-BRISTOL-MYERS SQUIBB COMPANY-14574362

PATIENT
  Age: 84 Year
  Sex: Male

DRUGS (11)
  1. SPRYCEL [Suspect]
     Indication: CHRONIC MYELOID LEUKAEMIA
     Route: 048
     Dates: start: 20090323, end: 20090323
  2. IRON [Concomitant]
     Route: 048
  3. FLOMAX [Concomitant]
     Route: 048
  4. FUROSEMIDE INTENSOL [Concomitant]
     Route: 048
  5. ALLOPURINOL [Concomitant]
     Route: 048
  6. MULTI-VITAMIN [Concomitant]
     Route: 048
  7. NEXIUM [Concomitant]
     Route: 048
  8. TYLENOL W/ CODEINE NO. 3 [Concomitant]
     Route: 048
  9. LISINOPRIL [Concomitant]
     Route: 048
  10. LEVOTHYROXINE SODIUM [Concomitant]
     Route: 048
  11. ALLEGRA [Concomitant]
     Route: 048

REACTIONS (3)
  - DIARRHOEA [None]
  - DYSPNOEA [None]
  - INFLUENZA LIKE ILLNESS [None]
